FAERS Safety Report 9869391 (Version 1)
Quarter: 2014Q1

REPORT INFORMATION
  Report Type: Spontaneous
  Country: US (occurrence: US)
  Receive Date: 20140205
  Receipt Date: 20140205
  Transmission Date: 20141002
  Serious: Yes (Other)
  Sender: FDA-Public Use
  Company Number: US-BAYER-2014-017058

PATIENT
  Age: 40 Year
  Sex: Female
  Weight: 92.52 kg

DRUGS (2)
  1. YAZ [Suspect]
  2. ESOMEPRAZOLE MAGNESIUM [Concomitant]
     Dosage: 20 MG, UNK

REACTIONS (5)
  - Thrombophlebitis superficial [None]
  - Deep vein thrombosis [Recovered/Resolved]
  - Cholecystitis chronic [None]
  - Thrombophlebitis superficial [None]
  - Thrombophlebitis superficial [None]
